FAERS Safety Report 23967924 (Version 1)
Quarter: 2024Q2

REPORT INFORMATION
  Report Type: Spontaneous
  Country: US (occurrence: US)
  Receive Date: 20240612
  Receipt Date: 20240612
  Transmission Date: 20240716
  Serious: No
  Sender: FDA-Public Use
  Company Number: US-RIGEL Pharmaceuticals, INC-2024FOS000313

PATIENT
  Sex: Male
  Weight: 133.24 kg

DRUGS (1)
  1. TAVALISSE [Suspect]
     Active Substance: FOSTAMATINIB
     Indication: Thrombocytopenia
     Dosage: 100 MG, BID
     Route: 048
     Dates: start: 20230902

REACTIONS (4)
  - Off label use [Unknown]
  - Product dose omission issue [Unknown]
  - Pneumonia [Unknown]
  - Diarrhoea [Unknown]
